FAERS Safety Report 7354048-8 (Version None)
Quarter: 2011Q1

REPORT INFORMATION
  Report Type: 
  Country: None (occurrence: None)
  Receive Date: 20110315
  Receipt Date: 20110309
  Transmission Date: 20110831
  Serious: Yes (Life-Threatening)
  Sender: FDA-Public Use
  Company Number: PHHY2011US02794

PATIENT
  Sex: Male
  Weight: 102 kg

DRUGS (8)
  1. FLOMAX ^CSL^ [Concomitant]
     Dosage: UNK
  2. VALIUM [Concomitant]
     Indication: SLEEP DISORDER
     Dosage: UNK
  3. EXTAVIA [Suspect]
     Dosage: 0.25 MG, QOD
     Route: 058
     Dates: start: 20110207
  4. PROVIGIL [Concomitant]
     Indication: FATIGUE
     Dosage: UNK
  5. EXTAVIA [Suspect]
     Dosage: 0.187 MG, QOD
     Route: 058
  6. BACLOFEN [Concomitant]
     Indication: MUSCLE SPASTICITY
     Dosage: 10 MG, AT NIGHT
  7. EXTAVIA [Suspect]
     Indication: MULTIPLE SCLEROSIS
     Dosage: 0.25 MG, QOD
     Route: 058
     Dates: start: 20110108, end: 20110109
  8. EXTAVIA [Suspect]
     Dosage: UNK UNK, UNK
     Route: 058
     Dates: start: 20110116

REACTIONS (10)
  - INCORRECT DOSE ADMINISTERED [None]
  - FEELING ABNORMAL [None]
  - FEELING HOT [None]
  - INJECTION SITE PAIN [None]
  - HEADACHE [None]
  - MUSCULAR WEAKNESS [None]
  - FATIGUE [None]
  - INFLUENZA LIKE ILLNESS [None]
  - PAIN [None]
  - ORAL HERPES [None]
